FAERS Safety Report 6932041-4 (Version None)
Quarter: 2010Q3

REPORT INFORMATION
  Report Type: 
  Country: None (occurrence: None)
  Receive Date: 20100812
  Receipt Date: 20090323
  Transmission Date: 20110219
  Serious: No
  Sender: FDA-Public Use
  Company Number: 2009-01056

PATIENT
  Age: 70 Year
  Sex: Female
  Weight: 58.0604 kg

DRUGS (7)
  1. ZICAM COLD REMEDY GEL SWABS [Suspect]
     Dosage: QID X 2 DAYS
     Dates: start: 20090319, end: 20090321
  2. LESCOL [Concomitant]
  3. EVISTA [Concomitant]
  4. FOSAMAX [Concomitant]
  5. ALLEGRA [Concomitant]
  6. ADVAIR DISKUS 100/50 [Concomitant]
  7. MULTI-VITAMIN [Concomitant]

REACTIONS (2)
  - AGEUSIA [None]
  - ANOSMIA [None]
